FAERS Safety Report 21406143 (Version 2)
Quarter: 2024Q2

REPORT INFORMATION
  Report Type: Spontaneous
  Country: IT (occurrence: IT)
  Receive Date: 20221004
  Receipt Date: 20240418
  Transmission Date: 20240716
  Serious: Yes (Other)
  Sender: FDA-Public Use
  Company Number: None

PATIENT
  Age: 66 Year
  Sex: Male
  Weight: 70 kg

DRUGS (1)
  1. RISANKIZUMAB [Suspect]
     Active Substance: RISANKIZUMAB
     Indication: Psoriasis
     Dosage: 150 MG
     Route: 058

REACTIONS (2)
  - Ischaemic cerebral infarction [Recovering/Resolving]
  - Vertebrobasilar stroke [Recovering/Resolving]

NARRATIVE: CASE EVENT DATE: 20220801
